FAERS Safety Report 10295771 (Version 2)
Quarter: 2015Q3

REPORT INFORMATION
  Report Type: Spontaneous
  Country: US (occurrence: US)
  Receive Date: 20140710
  Receipt Date: 20150709
  Transmission Date: 20151125
  Serious: No
  Sender: FDA-Public Use
  Company Number: US-PURDUE-USA-2014-0115224

PATIENT
  Age: 52 Year
  Sex: Female
  Weight: 65.76 kg

DRUGS (2)
  1. BUTRANS [Suspect]
     Active Substance: BUPRENORPHINE
     Indication: BACK PAIN
     Dosage: 5 MCG/HR, WEEKLY
     Route: 062
     Dates: start: 20140210, end: 20140219
  2. BUTRANS [Suspect]
     Active Substance: BUPRENORPHINE
     Indication: PAIN
     Dosage: 10 MCG/HR, WEEKLY
     Route: 062
     Dates: start: 20140219, end: 20140707

REACTIONS (8)
  - Application site irritation [Unknown]
  - Application site odour [Unknown]
  - Application site erythema [Unknown]
  - Inadequate analgesia [Unknown]
  - Application site erosion [Unknown]
  - Application site pain [Unknown]
  - Application site rash [Unknown]
  - Dermatitis contact [Unknown]

NARRATIVE: CASE EVENT DATE: 201402
